FAERS Safety Report 4421773-8 (Version None)
Quarter: 2004Q3

REPORT INFORMATION
  Report Type: 
  Country: None (occurrence: None)
  Receive Date: 20040806
  Receipt Date: 20040720
  Transmission Date: 20050211
  Serious: Yes (Hospitalization, Other)
  Sender: FDA-Public Use
  Company Number: USA040567639

PATIENT
  Age: 82 Year
  Sex: Female
  Weight: 39 kg

DRUGS (4)
  1. FORTEO [Suspect]
     Indication: OSTEOPOROSIS
     Dosage: 20 UG/1 DAY
     Dates: start: 20040201
  2. IRON [Concomitant]
  3. MACRODANTIN [Concomitant]
  4. HIGH BLOOD PRESSURE MEDICATION [Concomitant]

REACTIONS (2)
  - PHARMACEUTICAL PRODUCT COMPLAINT [None]
  - SPINAL FRACTURE [None]
